FAERS Safety Report 10978342 (Version 7)
Quarter: 2015Q3

REPORT INFORMATION
  Report Type: Spontaneous
  Country: BR (occurrence: BR)
  Receive Date: 20150402
  Receipt Date: 20150729
  Transmission Date: 20151125
  Serious: Yes (Hospitalization, Other)
  Sender: FDA-Public Use
  Company Number: BR-SA-2015SA039859

PATIENT
  Sex: Male
  Weight: 90 kg

DRUGS (17)
  1. VELIJA [Concomitant]
     Active Substance: DULOXETINE HYDROCHLORIDE
     Indication: ANXIETY
     Dosage: STRENGTH: 30 MG
     Route: 048
  2. LOSARTAN POTASSIUM. [Concomitant]
     Active Substance: LOSARTAN POTASSIUM
     Indication: HYPERTENSION
     Route: 048
  3. OMEPRAZOLE. [Concomitant]
     Active Substance: OMEPRAZOLE
     Indication: GASTRIC DISORDER
     Route: 048
  4. PREGABALIN. [Concomitant]
     Active Substance: PREGABALIN
     Indication: HYDROCEPHALUS
     Route: 048
  5. LANTUS SOLOSTAR [Suspect]
     Active Substance: INSULIN GLARGINE
     Indication: TYPE 2 DIABETES MELLITUS
     Dosage: START DATE: 8-10 YEARS AGO
     Route: 058
  6. JANUMET [Concomitant]
     Active Substance: METFORMIN HYDROCHLORIDE\SITAGLIPTIN PHOSPHATE
     Indication: TYPE 2 DIABETES MELLITUS
     Route: 048
  7. SOLOSTAR [Concomitant]
     Active Substance: DEVICE
     Indication: TYPE 2 DIABETES MELLITUS
  8. ETNA [Concomitant]
     Active Substance: UNSPECIFIED INGREDIENT
     Route: 048
  9. NOVORAPID [Concomitant]
     Active Substance: INSULIN ASPART
  10. NOVORAPID [Concomitant]
     Active Substance: INSULIN ASPART
  11. LANTUS SOLOSTAR [Suspect]
     Active Substance: INSULIN GLARGINE
     Indication: TYPE 2 DIABETES MELLITUS
     Dosage: START DATE: 8-10 YEARS AGO
     Route: 058
  12. STALEVO [Concomitant]
     Active Substance: CARBIDOPA\ENTACAPONE\LEVODOPA
     Route: 048
  13. NOVORAPID [Concomitant]
     Active Substance: INSULIN ASPART
     Dosage: DOSE: 8 IU AT EVERY MEAL
  14. ROSUVASTATIN [Concomitant]
     Active Substance: ROSUVASTATIN
     Indication: CARDIAC DISORDER
     Route: 048
  15. ASPIRIN. [Concomitant]
     Active Substance: ASPIRIN
     Indication: PROPHYLAXIS
     Route: 048
  16. NOVORAPID [Concomitant]
     Active Substance: INSULIN ASPART
  17. NOVORAPID [Concomitant]
     Active Substance: INSULIN ASPART
     Dates: start: 20150513

REACTIONS (11)
  - Localised infection [Recovering/Resolving]
  - Medical device implantation [Unknown]
  - Hyperglycaemia [Not Recovered/Not Resolved]
  - Sluggishness [Recovered/Resolved]
  - Urinary incontinence [Recovered/Resolved]
  - Weight increased [Recovering/Resolving]
  - Erythema [Recovering/Resolving]
  - Gait disturbance [Recovered/Resolved]
  - Hypersensitivity [Recovering/Resolving]
  - Pruritus [Recovering/Resolving]
  - Asthenia [Recovered/Resolved]
